FAERS Safety Report 13370979 (Version 2)
Quarter: 2017Q1

REPORT INFORMATION
  Report Type: Spontaneous
  Country: TR (occurrence: TR)
  Receive Date: 20170324
  Receipt Date: 20170331
  Transmission Date: 20170429
  Serious: No
  Sender: FDA-Public Use
  Company Number: TR-UCBSA-2017011061

PATIENT
  Age: 17 Year
  Sex: Female

DRUGS (9)
  1. ZONISAMIDE. [Concomitant]
     Active Substance: ZONISAMIDE
     Dosage: SLOWLY INCREASING DOSES AND MAXIMUM DOSE LEVEL, 12 MG/KG/DAY
  2. CLONAZEPAM. [Concomitant]
     Active Substance: CLONAZEPAM
     Indication: LAFORA^S MYOCLONIC EPILEPSY
     Dosage: 12 MG PER DAY
  3. SODIUM THIOPENTAL MITSUBISHI [Concomitant]
     Indication: PRODUCT USED FOR UNKNOWN INDICATION
     Dosage: UNKNOWN DOSE
  4. VALPROIC ACID. [Concomitant]
     Active Substance: VALPROIC ACID
     Indication: EPILEPSY
     Dosage: 1000 MG PER DAY
  5. ZONISAMIDE. [Concomitant]
     Active Substance: ZONISAMIDE
     Indication: LAFORA^S MYOCLONIC EPILEPSY
     Dosage: UNKNOWN DOSE
  6. LEVETIRACETAM. [Suspect]
     Active Substance: LEVETIRACETAM
     Indication: OFF LABEL USE
     Dosage: INCREASING DOSE
  7. VALPROIC ACID. [Concomitant]
     Active Substance: VALPROIC ACID
     Dosage: 3000 MG PER DAY
  8. LEVETIRACETAM. [Suspect]
     Active Substance: LEVETIRACETAM
     Indication: LAFORA^S MYOCLONIC EPILEPSY
     Dosage: UNKNOWN DOSE
  9. LEVETIRACETAM. [Suspect]
     Active Substance: LEVETIRACETAM
     Dosage: 3000 MG, ONCE DAILY (QD)

REACTIONS (1)
  - No adverse event [Unknown]
